FAERS Safety Report 4922678-6 (Version None)
Quarter: 2006Q1

REPORT INFORMATION
  Report Type: 
  Country: None (occurrence: None)
  Receive Date: 20060224
  Receipt Date: 20040805
  Transmission Date: 20060701
  Serious: Yes (Life-Threatening)
  Sender: FDA-Public Use
  Company Number: DE-ABBOTT-04P-062-0269432-00

PATIENT
  Sex: Female

DRUGS (9)
  1. CLARITHROMYCIN [Suspect]
     Indication: PEPTIC ULCER
     Route: 048
     Dates: start: 20040708, end: 20040713
  2. CLARITHROMYCIN [Suspect]
     Indication: HELICOBACTER INFECTION
  3. CLARITHROMYCIN [Suspect]
     Indication: ANTIBIOTIC PROPHYLAXIS
  4. PANTOPRAZOLE [Suspect]
     Indication: PEPTIC ULCER
     Route: 048
     Dates: start: 20040708, end: 20040713
  5. PANTOPRAZOLE [Suspect]
     Indication: HELICOBACTER INFECTION
  6. PANTOPRAZOLE [Suspect]
     Indication: GASTROOESOPHAGEAL REFLUX PROPHYLAXIS
  7. AMOXICILLIN TRIHYDRATE [Suspect]
     Indication: PEPTIC ULCER
     Route: 048
     Dates: start: 20040708, end: 20040713
  8. AMOXICILLIN TRIHYDRATE [Suspect]
     Indication: HELICOBACTER INFECTION
  9. AMOXICILLIN TRIHYDRATE [Suspect]
     Indication: THROMBOSIS PROPHYLAXIS

REACTIONS (3)
  - HAEMATOMA [None]
  - PETECHIAE [None]
  - THROMBOCYTOPENIA [None]
